FAERS Safety Report 15344110 (Version 1)
Quarter: 2018Q3

REPORT INFORMATION
  Report Type: Spontaneous
  Country: US (occurrence: US)
  Receive Date: 20180903
  Receipt Date: 20180903
  Transmission Date: 20181010
  Serious: No
  Sender: FDA-Public Use
  Company Number: US-JNJFOC-20180821112

PATIENT
  Sex: Female
  Weight: 81.65 kg

DRUGS (4)
  1. NEUTROGENA OFAW PINK GRAPEFRUIT FOAM SCRUB [Concomitant]
     Indication: PRODUCT USED FOR UNKNOWN INDICATION
     Dosage: A DIME SIZED AMOUNT
     Route: 065
     Dates: start: 20180813, end: 20180814
  2. NEUTROGENA MAKEUP REMOVER CLEANSING TOWELETTES [Concomitant]
     Indication: PRODUCT USED FOR UNKNOWN INDICATION
     Route: 065
  3. TYLENOL [Suspect]
     Active Substance: ACETAMINOPHEN
     Indication: INFLAMMATION
     Route: 048
  4. TYLENOL [Suspect]
     Active Substance: ACETAMINOPHEN
     Route: 048

REACTIONS (2)
  - Therapeutic response unexpected [Unknown]
  - Product use in unapproved indication [Unknown]
